FAERS Safety Report 13528944 (Version 3)
Quarter: 2017Q2

REPORT INFORMATION
  Report Type: Spontaneous
  Country: US (occurrence: US)
  Receive Date: 20170509
  Receipt Date: 20170516
  Transmission Date: 20170830
  Serious: No
  Sender: FDA-Public Use
  Company Number: US-ACTELION-A-US2017-153529

PATIENT
  Age: 64 Year
  Sex: Male

DRUGS (2)
  1. CLOBETASOL [Concomitant]
     Active Substance: CLOBETASOL
  2. VALCHLOR [Suspect]
     Active Substance: MECHLORETHAMINE
     Indication: MYCOSIS FUNGOIDES
     Dosage: UNK
     Route: 061
     Dates: start: 20170410

REACTIONS (6)
  - Application site pruritus [Unknown]
  - Skin irritation [Unknown]
  - Application site pain [Unknown]
  - Allergy to plants [Unknown]
  - Erythema [Unknown]
  - Skin ulcer [Unknown]
